FAERS Safety Report 10085403 (Version 1)
Quarter: 2014Q2

REPORT INFORMATION
  Report Type: Spontaneous
  Country: US (occurrence: US)
  Receive Date: 20140418
  Receipt Date: 20140418
  Transmission Date: 20141212
  Serious: No
  Sender: FDA-Public Use
  Company Number: US-009507513-1404USA010229

PATIENT
  Age: 22 Year
  Sex: Female
  Weight: 56.69 kg

DRUGS (1)
  1. NEXPLANON [Suspect]
     Indication: CONTRACEPTION
     Dosage: ONE ROD INSERTED EVERY THREE YEARS
     Route: 059
     Dates: start: 20130628

REACTIONS (1)
  - Pruritus [Not Recovered/Not Resolved]
